FAERS Safety Report 7261641-X (Version None)
Quarter: 2011Q1

REPORT INFORMATION
  Report Type: 
  Country: None (occurrence: None)
  Receive Date: 20110130
  Receipt Date: 20101022
  Transmission Date: 20110831
  Serious: No
  Sender: FDA-Public Use
  Company Number: US-ABBOTT-10P-163-0680548-00

PATIENT
  Age: 33 Year
  Sex: Female

DRUGS (5)
  1. ASPIRIN [Concomitant]
  2. HUMIRA [Suspect]
     Indication: PSORIASIS
     Dates: start: 20101001
  3. UNKNOWN OTC MEDICATIONS [Concomitant]
     Indication: PRODUCT USED FOR UNKNOWN INDICATION
  4. DEPO-PROVERA [Concomitant]
     Indication: PRODUCT USED FOR UNKNOWN INDICATION
  5. ASPIRIN [Concomitant]
     Indication: PAIN

REACTIONS (4)
  - INJECTION SITE ERYTHEMA [None]
  - INJECTION SITE SWELLING [None]
  - INJECTION SITE PAIN [None]
  - INJECTION SITE PRURITUS [None]
